FAERS Safety Report 9256213 (Version 1)
Quarter: 2013Q2

REPORT INFORMATION
  Report Type: Spontaneous
  Country: US (occurrence: US)
  Receive Date: 20130425
  Receipt Date: 20130425
  Transmission Date: 20140414
  Serious: No
  Sender: FDA-Public Use
  Company Number: US-AMGEN-USASP2013006919

PATIENT
  Age: 48 Year
  Sex: Female

DRUGS (4)
  1. NEULASTA [Suspect]
     Indication: NEUTROPENIA
     Dosage: 6 MG, UNK
     Dates: start: 20130112, end: 20130112
  2. TAXOTERE [Concomitant]
     Indication: BREAST CANCER
     Dosage: UNK
  3. CARBOPLATIN [Concomitant]
     Indication: BREAST CANCER
     Dosage: UNK
  4. HERCEPTIN [Concomitant]
     Indication: BREAST CANCER
     Dosage: UNK

REACTIONS (2)
  - White blood cell count increased [Unknown]
  - White blood cell count abnormal [Unknown]
